FAERS Safety Report 14828608 (Version 1)
Quarter: 2018Q2

REPORT INFORMATION
  Report Type: Spontaneous
  Country: US (occurrence: US)
  Receive Date: 20180430
  Receipt Date: 20180430
  Transmission Date: 20180711
  Serious: Yes (Life-Threatening, Other)
  Sender: FDA-Public Use
  Company Number: PHHY2018US067202

PATIENT
  Age: 59 Year
  Sex: Male

DRUGS (3)
  1. FLUDARABINE [Suspect]
     Active Substance: FLUDARABINE PHOSPHATE
     Indication: CHRONIC LYMPHOCYTIC LEUKAEMIA
     Dosage: 25 MG/M2
     Route: 042
  2. RITUXIMAB. [Suspect]
     Active Substance: RITUXIMAB
     Indication: CHRONIC LYMPHOCYTIC LEUKAEMIA
     Dosage: 375 MG/M2, ON DAY 1 OF EACH 28-DAY CYCLE
     Route: 041
  3. LENALIDOMIDE [Suspect]
     Active Substance: LENALIDOMIDE
     Indication: CHRONIC LYMPHOCYTIC LEUKAEMIA
     Dosage: 2.5 MG, QD (DAYS 1-21 OF A 28-DAY CYCLE)
     Route: 065

REACTIONS (5)
  - Myalgia [Unknown]
  - Rash [Unknown]
  - Blood creatine phosphokinase increased [Unknown]
  - Toxicity to various agents [Unknown]
  - Pyrexia [Unknown]
